FAERS Safety Report 6621619-3 (Version None)
Quarter: 2010Q1

REPORT INFORMATION
  Report Type: 
  Country: None (occurrence: None)
  Receive Date: 20100223
  Receipt Date: 20091105
  Transmission Date: 20100710
  Serious: No
  Sender: FDA-Public Use
  Company Number: 8054217

PATIENT
  Sex: Male

DRUGS (1)
  1. CERTOLIZUMAB PEGOL (UCB, INC) [Suspect]
     Dosage: (SUBCUTANEOUS)
     Route: 058
     Dates: start: 20090109

REACTIONS (2)
  - INFLUENZA [None]
  - PAIN [None]
